FAERS Safety Report 8667556 (Version 4)
Quarter: 2013Q4

REPORT INFORMATION
  Report Type: Spontaneous
  Country: US (occurrence: US)
  Receive Date: 20120717
  Receipt Date: 20131107
  Transmission Date: 20140711
  Serious: Yes (Other)
  Sender: FDA-Public Use
  Company Number: US-009507513-1207USA002367

PATIENT
  Age: 61 Year
  Sex: Male
  Weight: 122.45 kg

DRUGS (10)
  1. PEGINTRON [Suspect]
     Indication: HEPATITIS C
     Dosage: 180 MICROGRAM, QW, PER INJECTION
     Route: 058
     Dates: start: 20120626
  2. REBETOL [Suspect]
     Indication: HEPATITIS C
     Dosage: 200 MG, QD
     Route: 048
     Dates: start: 20120626
  3. INTERFERON (UNSPECIFIED) [Suspect]
     Indication: HEPATITIS C
     Dosage: 180 MICROGRAM PER KILOGRAM, QW
     Dates: start: 20120626
  4. CARDURA [Concomitant]
     Dosage: UNK
  5. TRICOR (ADENOSINE) [Concomitant]
     Dosage: UNK
  6. WELLBUTRIN [Concomitant]
     Dosage: UNK
  7. VITAMIN E [Concomitant]
     Dosage: UNK
  8. MICARDIS [Concomitant]
     Dosage: UNK
  9. OMEGA-3 MARINE TRIGLYCERIDES [Concomitant]
     Dosage: UNK
  10. GLUCOSAMINE [Concomitant]
     Dosage: UNK

REACTIONS (20)
  - Aphonia [Unknown]
  - Confusional state [Unknown]
  - Anaemia [Unknown]
  - Rectal haemorrhage [Unknown]
  - Anorectal discomfort [Unknown]
  - Dry throat [Unknown]
  - Injection site exfoliation [Unknown]
  - Amnesia [Unknown]
  - Dry mouth [Unknown]
  - Fatigue [Unknown]
  - Nausea [Unknown]
  - Diarrhoea [Unknown]
  - Alopecia [Unknown]
  - Dyspnoea [Unknown]
  - Dry skin [Unknown]
  - Depressed mood [Unknown]
  - Thrombocytopenia [Unknown]
  - Asthenia [Unknown]
  - Decreased appetite [Unknown]
  - Haemoglobin decreased [Unknown]
